FAERS Safety Report 5802485-2 (Version None)
Quarter: 2008Q2

REPORT INFORMATION
  Report Type: 
  Country: None (occurrence: None)
  Receive Date: 20080627
  Receipt Date: 20071002
  Transmission Date: 20081010
  Serious: Yes (Other)
  Sender: FDA-Public Use
  Company Number: 41434

PATIENT
  Sex: Female
  Weight: 56.246 kg

DRUGS (3)
  1. DIHYDROERGOTAMINE MESYLATE [Suspect]
     Indication: MIGRAINE
     Dosage: PRN/INTRAMUSCULARLY
     Route: 030
     Dates: start: 20070201
  2. REGLAN [Concomitant]
  3. PEPCID [Concomitant]

REACTIONS (1)
  - PARAESTHESIA [None]
